FAERS Safety Report 4549841-0 (Version None)
Quarter: 2004Q4

REPORT INFORMATION
  Report Type: 
  Country: None (occurrence: None)
  Receive Date: 20041227
  Receipt Date: 20041028
  Transmission Date: 20050328
  Serious: No
  Sender: FDA-Public Use
  Company Number: 04P-163-0279582-00

PATIENT
  Age: 62 Year
  Sex: Female
  Weight: 71.2147 kg

DRUGS (12)
  1. HUMIRA [Suspect]
     Indication: RHEUMATOID ARTHRITIS
     Dosage: 40 MG, 1 IN 2 WK, SUBCUTANEOUS
     Route: 058
     Dates: start: 20030301, end: 20041029
  2. ADVICOR [Concomitant]
  3. ESOMEPRAZOLE [Concomitant]
  4. MACROGOL [Concomitant]
  5. ZELNORM [Concomitant]
  6. NICOTINIC ACID [Concomitant]
  7. CYCLOBENZAPRINE HYDROCHLORIDE [Concomitant]
  8. VICODIN [Concomitant]
  9. BUCINDOLOL HYDROCHLORIDE [Concomitant]
  10. CLONAZEPAM [Concomitant]
  11. LEXAPRO [Concomitant]
  12. TRAZODONE [Concomitant]

REACTIONS (3)
  - BLOOD URINE PRESENT [None]
  - EAR INFECTION [None]
  - SINUSITIS [None]
